FAERS Safety Report 7498474-5 (Version None)
Quarter: 2011Q2

REPORT INFORMATION
  Report Type: 
  Country: None (occurrence: None)
  Receive Date: 20110524
  Receipt Date: 20091031
  Transmission Date: 20111010
  Serious: Yes (Other)
  Sender: FDA-Public Use
  Company Number: US-BAYER-200937861NA

PATIENT
  Age: 67 Year
  Sex: Male
  Weight: 91.156 kg

DRUGS (28)
  1. TRASYLOL [Suspect]
     Dosage: 0.5-1.5 CC/HR
     Route: 042
     Dates: end: 20000630
  2. FUROSEMIDE [Concomitant]
     Dosage: UNK
     Route: 048
     Dates: start: 19970101
  3. PRILOSEC [Concomitant]
     Dosage: 20 MG, QD
     Route: 048
  4. ACETYLSALICYLIC ACID SRT [Concomitant]
     Dosage: UNK
     Route: 048
     Dates: start: 19800101
  5. NITROGLYCERIN [Concomitant]
     Dosage: VARIED
     Route: 061
     Dates: start: 20000623
  6. ISOVUE-128 [Concomitant]
     Dosage: UNK
     Route: 042
     Dates: start: 20000630
  7. TRASYLOL [Suspect]
     Indication: CORONARY ARTERY BYPASS
     Dosage: 200 ML (PUMP PRIME)
     Route: 042
     Dates: start: 20000630
  8. VERSED [Concomitant]
     Dosage: 2 MG, UNK
     Route: 042
     Dates: start: 20000630
  9. FENTANYL [Concomitant]
     Dosage: 100 MG, UNK
     Route: 042
     Dates: start: 20000630
  10. PROPOFOL [Concomitant]
     Dosage: 15-25 ML/HR
     Route: 042
     Dates: start: 20000630
  11. PEPCID AC [Concomitant]
     Dosage: UNK UNK, PRN
     Route: 048
  12. PLAVIX [Concomitant]
     Dosage: 300 MG, ONCE
     Route: 048
     Dates: start: 20000625
  13. PLAVIX [Concomitant]
     Dosage: 75 MG, QD
     Route: 048
  14. PHENYLEPHRINE HCL [Concomitant]
     Dosage: 2100
     Route: 042
     Dates: start: 20000630
  15. PLASMALYTE [GLUCOSE,POTASSIUM CHLORIDE] [Concomitant]
     Dosage: 200 ML, UNK
     Route: 042
     Dates: start: 20000630
  16. TOPROL-XL [Concomitant]
     Dosage: 50 MG, QD
     Route: 048
     Dates: start: 19970101
  17. GLYBURIDE [Concomitant]
     Dosage: 5 MG, BID
     Route: 048
     Dates: start: 19960101
  18. ANCEF [Concomitant]
     Dosage: 1 G, QHRS
     Route: 042
     Dates: start: 20000626, end: 20000627
  19. INTEGRILIN [Concomitant]
     Dosage: VARIED BY WEIGHT
     Route: 042
     Dates: start: 20000626
  20. VANCOMYCIN [Concomitant]
     Dosage: 1 G, UNK
     Route: 042
     Dates: start: 20000627
  21. ZINACEF [Concomitant]
     Dosage: 1 G, UNK
     Route: 042
     Dates: start: 20000630
  22. NITROGLYCERIN [Concomitant]
     Dosage: UNK
     Route: 042
     Dates: start: 20000630
  23. MANNITOL [Concomitant]
     Dosage: 12.5 G, UNK
     Route: 042
     Dates: start: 20000630, end: 20000630
  24. NORVASC [Concomitant]
     Dosage: 10 MG, UNK
     Route: 048
     Dates: start: 19970101
  25. CARDIZEM CD [Concomitant]
     Dosage: 240 MG, QD
     Route: 048
     Dates: start: 19960101
  26. URISEPT [Concomitant]
     Dosage: UNK UNK, QID
     Route: 048
  27. HEPARIN [Concomitant]
     Dosage: 6000 U, UNK
     Route: 042
     Dates: start: 20000623
  28. LABETALOL [Concomitant]
     Dosage: 5 MG, UNK
     Route: 042
     Dates: start: 20000630

REACTIONS (10)
  - EMOTIONAL DISTRESS [None]
  - FEAR [None]
  - STRESS [None]
  - PAIN [None]
  - INJURY [None]
  - RENAL INJURY [None]
  - ANXIETY [None]
  - RENAL FAILURE [None]
  - RENAL IMPAIRMENT [None]
  - UNEVALUABLE EVENT [None]
